FAERS Safety Report 25304078 (Version 1)
Quarter: 2025Q2

REPORT INFORMATION
  Report Type: Spontaneous
  Country: CA (occurrence: CA)
  Receive Date: 20250513
  Receipt Date: 20250513
  Transmission Date: 20250716
  Serious: Yes (Death, Hospitalization, Other)
  Sender: CELLTRION
  Company Number: CA-PFIZER INC-202500071531

PATIENT

DRUGS (2)
  1. INFLECTRA [Suspect]
     Active Substance: INFLIXIMAB-DYYB
     Indication: Colitis ulcerative
     Route: 042
     Dates: start: 20250304
  2. INFLECTRA [Suspect]
     Active Substance: INFLIXIMAB-DYYB
     Route: 042
     Dates: start: 20250402

REACTIONS (3)
  - Ileostomy closure [Fatal]
  - Hernia [Fatal]
  - Gastrointestinal procedural complication [Fatal]
